FAERS Safety Report 14083772 (Version 2)
Quarter: 2018Q2

REPORT INFORMATION
  Report Type: Spontaneous
  Country: PL (occurrence: PL)
  Receive Date: 20171013
  Receipt Date: 20180427
  Transmission Date: 20180711
  Serious: Yes (Disabling, Other)
  Sender: FDA-Public Use
  Company Number: PL-EMD SERONO-8191890

PATIENT
  Age: 56 Year
  Sex: Male
  Weight: 68 kg

DRUGS (7)
  1. LORAFEN [Concomitant]
     Active Substance: LORAZEPAM
     Indication: PRODUCT USED FOR UNKNOWN INDICATION
  2. MEFACIT [Concomitant]
     Indication: PRODUCT USED FOR UNKNOWN INDICATION
  3. REBIF [Suspect]
     Active Substance: INTERFERON BETA-1A
     Indication: MULTIPLE SCLEROSIS
     Route: 058
     Dates: start: 201211, end: 20170828
  4. PROSTAMOL UNO [Concomitant]
     Indication: PRODUCT USED FOR UNKNOWN INDICATION
  5. VITAMIN D3 [Concomitant]
     Active Substance: CHOLECALCIFEROL
     Indication: PRODUCT USED FOR UNKNOWN INDICATION
  6. MILGAMMA                           /00089801/ [Concomitant]
     Indication: PRODUCT USED FOR UNKNOWN INDICATION
  7. SORTIS [Concomitant]
     Active Substance: ATORVASTATIN
     Indication: PRODUCT USED FOR UNKNOWN INDICATION

REACTIONS (9)
  - Central nervous system lesion [Unknown]
  - Somnolence [Unknown]
  - Cataract [Recovered/Resolved]
  - Expanded disability status scale score increased [Unknown]
  - Hypotonia [Unknown]
  - Disease progression [Unknown]
  - JC polyomavirus test positive [Unknown]
  - Asthenia [Unknown]
  - Speech disorder [Not Recovered/Not Resolved]

NARRATIVE: CASE EVENT DATE: 201706
